FAERS Safety Report 7753440-7 (Version None)
Quarter: 2011Q3

REPORT INFORMATION
  Report Type: 
  Country: None (occurrence: None)
  Receive Date: 20110915
  Receipt Date: 20110912
  Transmission Date: 20111222
  Serious: Yes (Hospitalization, Other)
  Sender: FDA-Public Use
  Company Number: US-TEVA-300403USA

PATIENT
  Age: 26 Year
  Sex: Female

DRUGS (3)
  1. LORAZEPAM [Interacting]
     Indication: ANXIETY
  2. NALOXONE [Interacting]
     Indication: DRUG DEPENDENCE
  3. BUPRENORPHINE [Suspect]
     Indication: DRUG DEPENDENCE

REACTIONS (2)
  - DRUG INTERACTION [None]
  - RESPIRATORY DEPRESSION [None]
